FAERS Safety Report 19002943 (Version 1)
Quarter: 2021Q1

REPORT INFORMATION
  Report Type: Spontaneous
  Country: PT (occurrence: PT)
  Receive Date: 20210312
  Receipt Date: 20210312
  Transmission Date: 20210420
  Serious: Yes (Hospitalization)
  Sender: FDA-Public Use
  Company Number: PT-MYLANLABS-2021M1014864

PATIENT
  Age: 44 Year
  Sex: Female

DRUGS (1)
  1. TERBINAFINE. [Suspect]
     Active Substance: TERBINAFINE
     Indication: ONYCHOMYCOSIS
     Dosage: QD (SCHEDULED FOR 3 MONTHS)
     Route: 048

REACTIONS (1)
  - Acute generalised exanthematous pustulosis [Recovered/Resolved]
